FAERS Safety Report 19250784 (Version 1)
Quarter: 2021Q2

REPORT INFORMATION
  Report Type: Other
  Country: US (occurrence: US)
  Receive Date: 20210513
  Receipt Date: 20210513
  Transmission Date: 20210717
  Serious: Yes (Other)
  Sender: FDA-Public Use
  Company Number: US-ROCHE-2821376

PATIENT
  Sex: Female

DRUGS (25)
  1. ACTEMRA [Suspect]
     Active Substance: TOCILIZUMAB
  2. ACTEMRA [Suspect]
     Active Substance: TOCILIZUMAB
     Indication: OSTEOARTHRITIS
  3. LEVOTHYROXINE. [Concomitant]
     Active Substance: LEVOTHYROXINE
  4. PANTOPRAZOLE [Concomitant]
     Active Substance: PANTOPRAZOLE
  5. PREDNISONE. [Concomitant]
     Active Substance: PREDNISONE
  6. ACTEMRA [Suspect]
     Active Substance: TOCILIZUMAB
     Indication: AUTOIMMUNE DISORDER
     Route: 058
  7. ACTEMRA [Suspect]
     Active Substance: TOCILIZUMAB
  8. LIDOCAINE. [Concomitant]
     Active Substance: LIDOCAINE
  9. CALCIUM CITRATE [Concomitant]
     Active Substance: CALCIUM CITRATE
  10. LEVALBUTEROL. [Concomitant]
     Active Substance: LEVALBUTEROL
  11. METHOTREXATE. [Concomitant]
     Active Substance: METHOTREXATE
  12. FAMOTIDINE. [Concomitant]
     Active Substance: FAMOTIDINE
  13. GABAPENTIN. [Concomitant]
     Active Substance: GABAPENTIN
  14. PROMETHAZINE [Concomitant]
     Active Substance: PROMETHAZINE HYDROCHLORIDE
  15. TERIPARATIDE [Concomitant]
     Active Substance: TERIPARATIDE
  16. CYCLOSPORINE. [Concomitant]
     Active Substance: CYCLOSPORINE
  17. NORVASC [Concomitant]
     Active Substance: AMLODIPINE BESYLATE
  18. ACTEMRA [Suspect]
     Active Substance: TOCILIZUMAB
  19. MONTELUKAST [Concomitant]
     Active Substance: MONTELUKAST SODIUM
  20. ACTEMRA [Suspect]
     Active Substance: TOCILIZUMAB
  21. METOPROLOL SUCCINATE. [Concomitant]
     Active Substance: METOPROLOL SUCCINATE
  22. OXYCODONE [Concomitant]
     Active Substance: OXYCODONE
  23. FEXOFENADINE [Concomitant]
     Active Substance: FEXOFENADINE HYDROCHLORIDE
  24. FOLVITE [Concomitant]
     Active Substance: FOLIC ACID
  25. TYLENOL [Concomitant]
     Active Substance: ACETAMINOPHEN

REACTIONS (3)
  - Cough [Unknown]
  - Glycosylated haemoglobin increased [Unknown]
  - White blood cell count decreased [Unknown]
